FAERS Safety Report 16398514 (Version 1)
Quarter: 2019Q3

REPORT INFORMATION
  Report Type: Spontaneous
  Country: US (occurrence: US)
  Receive Date: 20190605
  Receipt Date: 20190605
  Transmission Date: 20191004
  Serious: No
  Sender: FDA-Public Use
  Company Number: None

PATIENT
  Age: 35 Year
  Sex: Male
  Weight: 99 kg

DRUGS (4)
  1. METHYLPHENIDATE HCL (GENERIC RITALIN) [Suspect]
     Active Substance: METHYLPHENIDATE HYDROCHLORIDE
     Indication: ATTENTION DEFICIT/HYPERACTIVITY DISORDER
     Dosage: ?          QUANTITY:3 TABLET(S);?
     Route: 048
     Dates: start: 20190515, end: 20190602
  2. METFORMIN [Concomitant]
     Active Substance: METFORMIN HYDROCHLORIDE
  3. SIMVASTATIN. [Concomitant]
     Active Substance: SIMVASTATIN
  4. LISINOPRIL. [Concomitant]
     Active Substance: LISINOPRIL

REACTIONS (3)
  - Depression [None]
  - Suicidal ideation [None]
  - Product substitution issue [None]

NARRATIVE: CASE EVENT DATE: 20190520
